FAERS Safety Report 5232143-7 (Version None)
Quarter: 2007Q1

REPORT INFORMATION
  Report Type: 
  Country: None (occurrence: None)
  Receive Date: 20061201
  Receipt Date: 20060926
  Transmission Date: 20070707
  Serious: No
  Sender: FDA-Public Use
  Company Number: USA0510111990

PATIENT
  Age: 48 Year
  Sex: Female

DRUGS (1)
  1. CYMBALTA [Suspect]
     Indication: DEPRESSION
     Dosage: 60 MG
     Dates: start: 20050404, end: 20051020

REACTIONS (3)
  - ABORTION SPONTANEOUS [None]
  - DIZZINESS [None]
  - DRUG EXPOSURE DURING PREGNANCY [None]
